FAERS Safety Report 5826675-8 (Version None)
Quarter: 2008Q3

REPORT INFORMATION
  Report Type: 
  Country: None (occurrence: None)
  Receive Date: 20080730
  Receipt Date: 20080718
  Transmission Date: 20090109
  Serious: Yes (Other)
  Sender: FDA-Public Use
  Company Number: IE-WYE-H05200508

PATIENT
  Sex: Male

DRUGS (1)
  1. CORDARONE [Suspect]
     Dosage: DOSE AND FREQUENCY NOT SPECIFIED
     Route: 065

REACTIONS (2)
  - BLINDNESS [None]
  - BRAIN NEOPLASM BENIGN [None]
